FAERS Safety Report 7600022-3 (Version None)
Quarter: 2011Q3

REPORT INFORMATION
  Report Type: 
  Country: None (occurrence: None)
  Receive Date: 20110711
  Receipt Date: 20110627
  Transmission Date: 20111222
  Serious: Yes (Hospitalization, Other)
  Sender: FDA-Public Use
  Company Number: US-BAYER-201036331NA

PATIENT
  Age: 16 Year
  Sex: Female
  Weight: 50.794 kg

DRUGS (12)
  1. METOCLOPRAMIDE [Concomitant]
     Dosage: UNK
     Dates: start: 20030904
  2. SINGULAIR [Concomitant]
     Indication: MULTIPLE ALLERGIES
     Dosage: UNK
     Dates: start: 20041101
  3. PREVACID [Concomitant]
  4. PREVIDENT [Concomitant]
     Dosage: UNK
     Dates: start: 20030403, end: 20031005
  5. YASMIN [Suspect]
     Route: 048
     Dates: start: 20030101, end: 20100601
  6. LEVLITE [Concomitant]
  7. ZOLOFT [Concomitant]
     Dosage: UNK
     Dates: start: 20030901, end: 20060801
  8. ALLEGRA [Concomitant]
     Indication: MULTIPLE ALLERGIES
     Dosage: UNK
     Dates: start: 20000401, end: 20050401
  9. YAZ [Suspect]
     Route: 048
     Dates: start: 20030101, end: 20100601
  10. CLINDAMYCIN [Concomitant]
     Indication: INFECTION
     Dosage: UNK
     Dates: start: 20011101, end: 20090501
  11. PROTONIX [Concomitant]
     Dosage: UNK
     Dates: start: 20031223
  12. LURIDE [Concomitant]
     Dosage: UNK
     Dates: start: 20031002, end: 20040611

REACTIONS (7)
  - CHOLECYSTITIS CHRONIC [None]
  - DEHYDRATION [None]
  - MALNUTRITION [None]
  - GASTROOESOPHAGEAL REFLUX DISEASE [None]
  - GALLBLADDER DISORDER [None]
  - BILIARY DYSKINESIA [None]
  - ASTHMA [None]
